FAERS Safety Report 20558425 (Version 7)
Quarter: 2022Q3

REPORT INFORMATION
  Report Type: Report from Study
  Country: US (occurrence: US)
  Receive Date: 20220307
  Receipt Date: 20220909
  Transmission Date: 20221026
  Serious: Yes (Life-Threatening, Other)
  Sender: FDA-Public Use
  Company Number: US-NOVARTISPH-NVSC2022US051068

PATIENT
  Sex: Male

DRUGS (1)
  1. ENTRESTO [Suspect]
     Active Substance: SACUBITRIL\VALSARTAN
     Indication: Product used for unknown indication
     Dosage: 1 DOSAGE FORM (49/51 MG), BID (STARTED 5 YEARS AGO)
     Route: 065

REACTIONS (9)
  - Feeling abnormal [Unknown]
  - Intracardiac thrombus [Unknown]
  - Prostate cancer [Unknown]
  - Multiple allergies [Unknown]
  - Decreased activity [Unknown]
  - Dyspnoea [Unknown]
  - Fatigue [Unknown]
  - Cough [Unknown]
  - Product dose omission in error [Unknown]
